FAERS Safety Report 4688335-9 (Version None)
Quarter: 2005Q2

REPORT INFORMATION
  Report Type: 
  Country: None (occurrence: None)
  Receive Date: 20050609
  Receipt Date: 20050425
  Transmission Date: 20051028
  Serious: Yes (Hospitalization)
  Sender: FDA-Public Use
  Company Number: 11319

PATIENT
  Age: 64 Year
  Sex: Male

DRUGS (4)
  1. CARBOPLATIN [Suspect]
     Indication: NON-SMALL CELL LUNG CANCER
     Dosage: 550 MG QD IV
     Route: 042
     Dates: end: 20050228
  2. CARBOPLATIN [Suspect]
  3. CISPLATIN [Suspect]
     Indication: NON-SMALL CELL LUNG CANCER
     Dosage: 315 MG QD IV
     Route: 042
     Dates: start: 20050117, end: 20050228
  4. PACLITAXEL [Suspect]
     Indication: NON-SMALL CELL LUNG CANCER
     Dosage: 315 MG QD IV
     Route: 042
     Dates: start: 20050117, end: 20050228

REACTIONS (7)
  - ARTHRALGIA [None]
  - DISCOMFORT [None]
  - ELECTROMYOGRAM ABNORMAL [None]
  - GASTROINTESTINAL DISORDER [None]
  - HYPOAESTHESIA [None]
  - PARAESTHESIA [None]
  - PARESIS [None]
